FAERS Safety Report 5212751-X (Version None)
Quarter: 2006Q4

REPORT INFORMATION
  Report Type: 
  Country: None (occurrence: None)
  Receive Date: 20061115
  Receipt Date: 20060714
  Transmission Date: 20070319
  Serious: No
  Sender: FDA-Public Use
  Company Number: 200610828BWH

PATIENT
  Age: 64 Year
  Sex: Female

DRUGS (18)
  1. NEXAVAR [Suspect]
     Indication: RENAL CELL CARCINOMA STAGE UNSPECIFIED
     Dosage: 200 MG, BID; ORAL, 400 MG, QD; ORAL
     Route: 048
     Dates: start: 20060101, end: 20060101
  2. NEXAVAR [Suspect]
     Indication: RENAL CELL CARCINOMA STAGE UNSPECIFIED
     Dosage: 200 MG, BID; ORAL, 400 MG, QD; ORAL
     Route: 048
     Dates: start: 20060101
  3. DILANTIN [Concomitant]
  4. ACTOS [Concomitant]
  5. AMARYL [Concomitant]
  6. HUMULIN (INSULIN HUMAN) [Concomitant]
  7. DIAMOX [Concomitant]
  8. LASIX [Concomitant]
  9. CLONIDINE [Concomitant]
  10. VITAMINS [Concomitant]
  11. OXYGEN [Concomitant]
  12. FOSAMAX [Concomitant]
  13. MIACALCIN [Concomitant]
  14. SYNTHROID [Concomitant]
  15. ... [Concomitant]
  16. ... [Concomitant]
  17. ... [Concomitant]
  18. ... [Concomitant]

REACTIONS (2)
  - FLUSHING [None]
  - PAIN [None]
